FAERS Safety Report 6164297-2 (Version None)
Quarter: 2009Q2

REPORT INFORMATION
  Report Type: 
  Country: None (occurrence: None)
  Receive Date: 20090422
  Receipt Date: 20090416
  Transmission Date: 20091009
  Serious: Yes (Other)
  Sender: FDA-Public Use
  Company Number: PT-ABBOTT-09P-130-0560869-00

PATIENT
  Sex: Male

DRUGS (3)
  1. HUMIRA [Suspect]
     Indication: CROHN'S DISEASE
     Route: 058
     Dates: end: 20090201
  2. IRON [Concomitant]
     Indication: ANAEMIA
  3. ERYTHROPOETIN [Concomitant]
     Indication: ANAEMIA

REACTIONS (5)
  - ANAEMIA [None]
  - BLOOD CREATININE INCREASED [None]
  - BLOOD URIC ACID INCREASED [None]
  - DIARRHOEA [None]
  - RENAL IMPAIRMENT [None]
